FAERS Safety Report 10216360 (Version 1)
Quarter: 2014Q2

REPORT INFORMATION
  Report Type: Spontaneous
  Country: US (occurrence: US)
  Receive Date: 20140604
  Receipt Date: 20140604
  Transmission Date: 20141212
  Serious: Yes (Other)
  Sender: FDA-Public Use
  Company Number: US-PFIZER INC-2014151551

PATIENT
  Age: 13 Year
  Sex: Female

DRUGS (1)
  1. ADVIL [Suspect]
     Dosage: 600 MG (200MG X3) AT 8 AM AND 400 MG (200MG X 2) AT 10 AM
     Dates: start: 20140602

REACTIONS (2)
  - Extra dose administered [Unknown]
  - Intestinal haemorrhage [Unknown]
